FAERS Safety Report 9693277 (Version 1)
Quarter: 2013Q4

REPORT INFORMATION
  Report Type: Spontaneous
  Country: MX (occurrence: MX)
  Receive Date: 20131118
  Receipt Date: 20131118
  Transmission Date: 20140711
  Serious: Yes (Other)
  Sender: FDA-Public Use
  Company Number: MX-ROCHE-1302594

PATIENT
  Sex: Male
  Weight: 51 kg

DRUGS (3)
  1. FUZEON [Suspect]
     Indication: HIV INFECTION
     Route: 058
     Dates: start: 20100812
  2. DARUNAVIR [Concomitant]
     Indication: HIV INFECTION
     Route: 048
  3. RITONAVIR [Concomitant]
     Indication: HIV INFECTION
     Route: 048

REACTIONS (5)
  - Erythema [Not Recovered/Not Resolved]
  - Induration [Not Recovered/Not Resolved]
  - Synovial cyst [Not Recovered/Not Resolved]
  - Drug ineffective [Unknown]
  - Pyrexia [Not Recovered/Not Resolved]
